FAERS Safety Report 10812278 (Version 3)
Quarter: 2015Q1

REPORT INFORMATION
  Report Type: Spontaneous
  Country: JP (occurrence: JP)
  Receive Date: 20150218
  Receipt Date: 20150324
  Transmission Date: 20150721
  Serious: Yes (Hospitalization, Other)
  Sender: FDA-Public Use
  Company Number: JP-AMGEN-JPNSP2015007732

PATIENT
  Age: 84 Year
  Sex: Female
  Weight: 40 kg

DRUGS (15)
  1. VEPESID [Concomitant]
     Active Substance: ETOPOSIDE
     Indication: PERIPHERAL T-CELL LYMPHOMA UNSPECIFIED
     Dosage: UNK
     Route: 042
     Dates: start: 20141203, end: 201412
  2. CYLOCIDE N [Concomitant]
     Dosage: UNK
     Dates: start: 20150118, end: 201501
  3. SOL-MELCORT [Concomitant]
     Active Substance: METHYLPREDNISOLONE SODIUM SUCCINATE
     Dosage: 125 MG, QID
     Route: 042
     Dates: start: 20141225, end: 20141228
  4. G-LASTA [Suspect]
     Active Substance: PEGFILGRASTIM
     Indication: PANCYTOPENIA
     Dosage: 3.6 MG, SINGLE
     Route: 058
     Dates: start: 20141229, end: 20141229
  5. CYLOCIDE N [Concomitant]
     Dosage: 1000 UNK, UNK
     Route: 042
     Dates: start: 20141228, end: 20141228
  6. SOL-MELCORT [Concomitant]
     Active Substance: METHYLPREDNISOLONE SODIUM SUCCINATE
     Indication: PERIPHERAL T-CELL LYMPHOMA UNSPECIFIED
     Dosage: UNK
     Route: 042
     Dates: start: 20141204, end: 201412
  7. CISPLATIN. [Concomitant]
     Active Substance: CISPLATIN
     Indication: PERIPHERAL T-CELL LYMPHOMA UNSPECIFIED
     Dosage: UNK
     Route: 042
     Dates: start: 20141203, end: 201412
  8. CYLOCIDE N [Concomitant]
     Indication: PERIPHERAL T-CELL LYMPHOMA UNSPECIFIED
     Dosage: UNK
     Route: 042
     Dates: start: 20141207, end: 201412
  9. VEPESID [Concomitant]
     Active Substance: ETOPOSIDE
     Dosage: 40 MG, QID
     Route: 042
     Dates: start: 20141224, end: 20141227
  10. FILGRASTIM [Concomitant]
     Active Substance: FILGRASTIM
     Indication: PANCYTOPENIA
     Dosage: 75 MCG, TID
     Route: 042
     Dates: start: 20141212, end: 20141214
  11. KYTRIL [Concomitant]
     Active Substance: GRANISETRON HYDROCHLORIDE
     Indication: PERIPHERAL T-CELL LYMPHOMA UNSPECIFIED
     Dosage: 3 MG, 5X/DAY
     Route: 042
     Dates: start: 20141224, end: 20141228
  12. VEPESID [Concomitant]
     Active Substance: ETOPOSIDE
     Dosage: UNK
     Route: 042
     Dates: start: 20150114, end: 201501
  13. SOL-MELCORT [Concomitant]
     Active Substance: METHYLPREDNISOLONE SODIUM SUCCINATE
     Dosage: UNK
     Route: 042
     Dates: start: 20150114, end: 201501
  14. CISPLATIN. [Concomitant]
     Active Substance: CISPLATIN
     Dosage: 30 MG, QID
     Route: 042
     Dates: start: 20141224, end: 20141227
  15. CISPLATIN. [Concomitant]
     Active Substance: CISPLATIN
     Dosage: UNK
     Route: 042
     Dates: start: 20150114, end: 201501

REACTIONS (5)
  - White blood cell count increased [Recovering/Resolving]
  - Vomiting [Recovered/Resolved]
  - Diarrhoea [Recovered/Resolved]
  - Loss of consciousness [Recovered/Resolved]
  - Palpitations [Recovered/Resolved]

NARRATIVE: CASE EVENT DATE: 20141229
